FAERS Safety Report 9958619 (Version 4)
Quarter: 2014Q1

REPORT INFORMATION
  Report Type: Report from Study
  Country: DE (occurrence: DE)
  Receive Date: 20140305
  Receipt Date: 20140323
  Transmission Date: 20141002
  Serious: Yes (Other)
  Sender: FDA-Public Use
  Company Number: DE-AMGEN-DEUCT2013084920

PATIENT
  Age: 49 Year
  Sex: Male
  Weight: 76 kg

DRUGS (11)
  1. ETANERCEPT [Suspect]
     Indication: PRODUCT USED FOR UNKNOWN INDICATION
     Dosage: 50 MG, WEEKLY
     Route: 065
     Dates: start: 20130320, end: 20130710
  2. PREDNISOLON                        /00016201/ [Concomitant]
     Indication: RHEUMATOID ARTHRITIS
     Dosage: UNK, FOR YEARS
     Route: 048
  3. URSOFALK [Concomitant]
     Indication: BILIARY CIRRHOSIS PRIMARY
     Dosage: UNK
     Route: 048
     Dates: start: 201301, end: 201304
  4. URSOFALK [Concomitant]
     Indication: CHOLANGITIS
     Dosage: UNK
  5. ASS [Concomitant]
     Indication: CORONARY ARTERY DISEASE
     Dosage: UNK
     Route: 048
     Dates: start: 201203
  6. RAMIPRIL [Concomitant]
     Indication: CORONARY ARTERY DISEASE
     Dosage: UNK
     Route: 048
     Dates: start: 201201
  7. BISOPROLOL [Concomitant]
     Indication: CORONARY ARTERY DISEASE
     Dosage: UNK
     Route: 048
     Dates: start: 201201
  8. PANTOZOL                           /01263204/ [Concomitant]
     Indication: CORONARY ARTERY DISEASE
     Dosage: UNK
     Route: 048
     Dates: start: 201201
  9. HYDROCHLOORTHIAZIDE [Concomitant]
     Indication: CORONARY ARTERY DISEASE
     Dosage: UNK
     Route: 048
     Dates: start: 201203
  10. EFFIENT [Concomitant]
     Indication: CORONARY ARTERY DISEASE
     Dosage: UNK
     Route: 048
     Dates: start: 201203
  11. EFFIENT [Concomitant]
     Indication: STENT PLACEMENT
     Dosage: UNK

REACTIONS (1)
  - Cardiac failure [Recovering/Resolving]
